FAERS Safety Report 7919688-3 (Version None)
Quarter: 2011Q4

REPORT INFORMATION
  Report Type: 
  Country: None (occurrence: None)
  Receive Date: 20111117
  Receipt Date: 20111115
  Transmission Date: 20120403
  Serious: Yes (Death)
  Sender: FDA-Public Use
  Company Number: DE-B.I. PHARMACEUTICALS,INC./RIDGEFIELD-2011-DE-06344DE

PATIENT
  Sex: Female
  Weight: 55 kg

DRUGS (5)
  1. NOVAMINSULFON [Concomitant]
     Indication: PAIN
     Dosage: 500 MG
     Route: 048
  2. TORSEMIDE [Concomitant]
     Indication: CARDIAC FAILURE
     Dosage: 10 MG
     Route: 048
  3. PRADAXA [Suspect]
     Indication: ATRIAL FIBRILLATION
     Dosage: 110 MG
     Route: 048
     Dates: start: 20111001, end: 20111028
  4. GINGIUM [Concomitant]
  5. METOPROLOL SUCCINATE [Concomitant]
     Indication: ATRIAL FIBRILLATION
     Dosage: 47.5 MG
     Route: 048

REACTIONS (1)
  - DEATH [None]
